FAERS Safety Report 4831288-0 (Version None)
Quarter: 2005Q4

REPORT INFORMATION
  Report Type: 
  Country: None (occurrence: None)
  Receive Date: 20051116
  Receipt Date: 20051116
  Transmission Date: 20060501
  Serious: Yes (Hospitalization)
  Sender: FDA-Public Use
  Company Number: None

PATIENT
  Age: 82 Year
  Sex: Female
  Weight: 90 kg

DRUGS (7)
  1. FARESTON [Suspect]
     Indication: BREAST CANCER
     Dosage: 60MG QDAY P.O.
     Route: 048
     Dates: start: 20010412
  2. AMIODARONE [Concomitant]
  3. ATENOLOL [Concomitant]
  4. DOCUSATE SODIUM [Concomitant]
  5. HYDROCHLOROTHIAZIDE [Concomitant]
  6. LISINOPRIL [Concomitant]
  7. NITROGLYCERIN [Concomitant]

REACTIONS (2)
  - LUNG CYST BENIGN [None]
  - LUNG NEOPLASM [None]
